FAERS Safety Report 4494480-3 (Version None)
Quarter: 2004Q4

REPORT INFORMATION
  Report Type: 
  Country: None (occurrence: None)
  Receive Date: 20041102
  Receipt Date: 20041021
  Transmission Date: 20050328
  Serious: Yes (Other)
  Sender: FDA-Public Use
  Company Number: 2004052387

PATIENT
  Age: 72 Year
  Sex: Male
  Weight: 80 kg

DRUGS (9)
  1. LIPITOR [Suspect]
     Indication: HYPERCHOLESTEROLAEMIA
     Dosage: 60 MG (40 MG, 1 D), ORAL
     Route: 048
     Dates: start: 20030404
  2. CLOPIDOGREL BISULFATE [Concomitant]
  3. NIFEDIPINE [Concomitant]
  4. GLICLAZIDE (GLICLAZIDE) [Concomitant]
  5. SALBUTAMOL (SALBUTAMOL) [Concomitant]
  6. VERAPAMIL [Concomitant]
  7. LEVOTHYROXINE SODIUM [Concomitant]
  8. FUROSEMIDE [Concomitant]
  9. POTASSIUM CHLORIDE [Concomitant]

REACTIONS (3)
  - MESOTHELIOMA [None]
  - MUSCULAR WEAKNESS [None]
  - POLYMYALGIA [None]
